FAERS Safety Report 8176090-X (Version None)
Quarter: 2012Q1

REPORT INFORMATION
  Report Type: 
  Country: None (occurrence: None)
  Receive Date: 20120301
  Receipt Date: 20120220
  Transmission Date: 20120608
  Serious: Yes (Other)
  Sender: FDA-Public Use
  Company Number: US-BRISTOL-MYERS SQUIBB COMPANY-16407140

PATIENT
  Age: 47 Year
  Sex: Female

DRUGS (2)
  1. TRIAMCINOLONE ACETONIDE [Suspect]
     Indication: BACK PAIN
     Dosage: 3 EPIDURAL STEROID INJ
     Route: 008
  2. RITONAVIR [Interacting]
     Indication: HIV INFECTION CDC CATEGORY C3

REACTIONS (2)
  - CUSHING'S SYNDROME [None]
  - DRUG INTERACTION [None]
